FAERS Safety Report 6616680-6 (Version None)
Quarter: 2010Q1

REPORT INFORMATION
  Report Type: 
  Country: None (occurrence: None)
  Receive Date: 20100305
  Receipt Date: 20100301
  Transmission Date: 20100710
  Serious: Yes (Death, Hospitalization)
  Sender: FDA-Public Use
  Company Number: GB-ELI_LILLY_AND_COMPANY-GB201002002328

PATIENT
  Sex: Female

DRUGS (4)
  1. SOMATROPIN [Suspect]
     Indication: GROWTH HORMONE DEFICIENCY
     Dosage: 0.4 MG, DAILY (1/D)
     Route: 058
     Dates: start: 20020607, end: 20100206
  2. HYDROCORTISONE [Concomitant]
     Indication: HYPOPITUITARISM
     Dates: start: 19770101
  3. LEVOTHYROXINE SODIUM [Concomitant]
     Indication: HYPOPITUITARISM
     Dates: start: 19770101
  4. RALOXIFENE HCL [Concomitant]
     Indication: OSTEOPENIA
     Dates: start: 20070101

REACTIONS (2)
  - DEATH [None]
  - VOMITING [None]
